FAERS Safety Report 9782528 (Version 1)
Quarter: 2013Q4

REPORT INFORMATION
  Report Type: Spontaneous
  Country: US (occurrence: None)
  Receive Date: 20131224
  Receipt Date: 20131224
  Transmission Date: 20140711
  Serious: No
  Sender: FDA-Public Use
  Company Number: None

PATIENT
  Age: 86 Year
  Sex: Male

DRUGS (1)
  1. CLOTRIMAZOLE 1% ATHLETES FOOT [Suspect]
     Route: 061

REACTIONS (3)
  - Incorrect route of drug administration [None]
  - Eye irritation [None]
  - Medication error [None]
